FAERS Safety Report 8313739-2 (Version None)
Quarter: 2012Q2

REPORT INFORMATION
  Report Type: 
  Country: None (occurrence: None)
  Receive Date: 20120426
  Receipt Date: 20110808
  Transmission Date: 20120825
  Serious: Yes (Other)
  Sender: FDA-Public Use
  Company Number: US-TEVA-US018907

PATIENT
  Sex: Male
  Weight: 99.88 kg

DRUGS (10)
  1. CARDIZEM [Concomitant]
     Indication: CARDIAC DISORDER
     Route: 048
     Dates: start: 19910101
  2. LIPITOR [Concomitant]
     Indication: HYPERCHOLESTEROLAEMIA
     Route: 048
     Dates: start: 20050101
  3. ALTACE [Concomitant]
     Indication: CARDIAC DISORDER
     Route: 048
     Dates: start: 20050101
  4. ASPIRIN [Concomitant]
     Route: 048
     Dates: start: 20050101
  5. PREDNISONE TAB [Concomitant]
     Indication: ARTHRITIS
     Route: 048
     Dates: start: 20050101
  6. VITAMIN E [Concomitant]
     Route: 048
     Dates: start: 20050101
  7. ALTACE [Concomitant]
     Indication: HYPERTENSION
  8. AMBIEN [Concomitant]
     Indication: SLEEP DISORDER
     Route: 048
     Dates: start: 20050101
  9. FISH OIL [Concomitant]
     Route: 048
     Dates: start: 20050101
  10. PROVIGIL [Suspect]
     Indication: SLEEP APNOEA SYNDROME
     Dosage: 2 TABLETS QAM
     Route: 048
     Dates: start: 20061111, end: 20061120

REACTIONS (3)
  - OROPHARYNGEAL BLISTERING [None]
  - DRY MOUTH [None]
  - PAIN IN JAW [None]
